FAERS Safety Report 8137919-4 (Version None)
Quarter: 2012Q1

REPORT INFORMATION
  Report Type: 
  Country: None (occurrence: None)
  Receive Date: 20120215
  Receipt Date: 20120203
  Transmission Date: 20120608
  Serious: Yes (Other)
  Sender: FDA-Public Use
  Company Number: US-ELI_LILLY_AND_COMPANY-US201201004602

PATIENT
  Age: 77 Year
  Sex: Male

DRUGS (9)
  1. CYMBALTA [Suspect]
     Dosage: 20 MG, EVERY FOURTH DAY
  2. CYMBALTA [Suspect]
     Dosage: 20 MG, WEEKLY (1/W)
  3. CYMBALTA [Suspect]
     Dosage: 20 MG, QD
     Dates: start: 20120113
  4. AXIRON [Suspect]
     Dosage: 30 MG, UNKNOWN
     Route: 061
  5. CYMBALTA [Suspect]
     Indication: DEPRESSION
     Dosage: 30 MG, UNKNOWN
     Dates: start: 20111201
  6. CYMBALTA [Suspect]
     Dosage: 20 MG, EVERY THIRD DAY
  7. CYMBALTA [Suspect]
     Dosage: 20 MG, EVERY FIFIFTH DAY
  8. CYMBALTA [Suspect]
     Dosage: 20 MG, QOD
  9. CYMBALTA [Suspect]
     Dosage: 20 MG, EVERY SIXTH DAY

REACTIONS (6)
  - BLINDNESS [None]
  - DRUG INEFFECTIVE [None]
  - VISION BLURRED [None]
  - CRYING [None]
  - SUICIDAL IDEATION [None]
  - IRRITABILITY [None]
